FAERS Safety Report 4414314-2 (Version None)
Quarter: 2004Q3

REPORT INFORMATION
  Report Type: 
  Country: None (occurrence: None)
  Receive Date: 20040729
  Receipt Date: 20040714
  Transmission Date: 20050211
  Serious: Yes (Other)
  Sender: FDA-Public Use
  Company Number: 2004223996US

PATIENT
  Age: 69 Year
  Sex: Female

DRUGS (2)
  1. PROVERA [Suspect]
     Indication: MENOPAUSAL SYMPTOMS
     Dates: start: 19870101
  2. PREMARIN [Suspect]
     Indication: MENOPAUSAL SYMPTOMS
     Dates: start: 19870101

REACTIONS (3)
  - BREAST CANCER STAGE III [None]
  - OESTROGEN RECEPTOR ASSAY POSITIVE [None]
  - PROGESTERONE RECEPTOR ASSAY POSITIVE [None]
